FAERS Safety Report 6290305-4 (Version None)
Quarter: 2009Q3

REPORT INFORMATION
  Report Type: 
  Country: None (occurrence: None)
  Receive Date: 20090730
  Receipt Date: 20090217
  Transmission Date: 20100115
  Serious: No
  Sender: FDA-Public Use
  Company Number: US-BRISTOL-MYERS SQUIBB COMPANY-14508584

PATIENT
  Age: 77 Year
  Sex: Male

DRUGS (2)
  1. COUMADIN [Suspect]
     Dosage: REPLACEMENT TABLETS - LOT# 7J29544A AND EXPIRATION DATE 02/2010
     Dates: start: 20080801
  2. PRINIVIL [Concomitant]

REACTIONS (3)
  - DYSPEPSIA [None]
  - DYSPNOEA [None]
  - RASH [None]
